FAERS Safety Report 10886687 (Version 1)
Quarter: 2015Q1

REPORT INFORMATION
  Report Type: Spontaneous
  Country: US (occurrence: US)
  Receive Date: 20150304
  Receipt Date: 20150304
  Transmission Date: 20150721
  Serious: No
  Sender: FDA-Public Use
  Company Number: US-GLAXOSMITHKLINE-US2015001200

PATIENT
  Sex: Male

DRUGS (5)
  1. MUCINEX [Concomitant]
     Active Substance: GUAIFENESIN
  2. BREO ELLIPTA [Suspect]
     Active Substance: FLUTICASONE FUROATE\VILANTEROL TRIFENATATE
     Indication: DYSPNOEA
     Dosage: 1 PUFF(S), PRN
     Route: 055
     Dates: start: 2014
  3. TAMSULOSIN [Concomitant]
     Active Substance: TAMSULOSIN
  4. TAMSULOSIN [Suspect]
     Active Substance: TAMSULOSIN
     Indication: PROSTATIC DISORDER
     Dosage: 0.4 MG, QD
     Route: 048
     Dates: start: 2014, end: 201501
  5. SULFAMETHOXAZOLE [Concomitant]
     Active Substance: SULFAMETHOXAZOLE

REACTIONS (5)
  - Dyspnoea [Not Recovered/Not Resolved]
  - Off label use [Unknown]
  - Dyspnoea exertional [Not Recovered/Not Resolved]
  - Dizziness [Recovered/Resolved]
  - Thinking abnormal [Recovered/Resolved]

NARRATIVE: CASE EVENT DATE: 2014
